FAERS Safety Report 7081262-1 (Version None)
Quarter: 2010Q4

REPORT INFORMATION
  Report Type: 
  Country: None (occurrence: None)
  Receive Date: 20101103
  Receipt Date: 20101029
  Transmission Date: 20110411
  Serious: Yes (Death)
  Sender: FDA-Public Use
  Company Number: FR-WATSON-2010-14421

PATIENT
  Age: 34 Year
  Sex: Male

DRUGS (4)
  1. DIAZEPAM [Suspect]
     Indication: PRODUCT USED FOR UNKNOWN INDICATION
     Dosage: UNK
  2. COCAINE [Suspect]
     Indication: PRODUCT USED FOR UNKNOWN INDICATION
     Dosage: UNK
  3. CANNABIS [Suspect]
     Indication: PRODUCT USED FOR UNKNOWN INDICATION
     Dosage: UNK
  4. METHADONE HCL [Suspect]
     Indication: DETOXIFICATION
     Dosage: UNK

REACTIONS (2)
  - DRUG INTERACTION [None]
  - SUDDEN DEATH [None]
